FAERS Safety Report 9318384 (Version 2)
Quarter: 2014Q2

REPORT INFORMATION
  Report Type: Spontaneous
  Country: US (occurrence: US)
  Receive Date: 20130530
  Receipt Date: 20140530
  Transmission Date: 20141212
  Serious: No
  Sender: FDA-Public Use
  Company Number: US-GLAXOSMITHKLINE-A1012495A

PATIENT
  Age: 56 Year
  Sex: Female

DRUGS (10)
  1. VENTOLIN [Suspect]
     Indication: ASTHMA
     Dosage: 2PUFF AS REQUIRED
     Route: 055
     Dates: start: 2012
  2. FLOVENT [Concomitant]
  3. PREVACID [Concomitant]
  4. SUDAFED [Concomitant]
  5. BENADRYL [Concomitant]
  6. WELLBUTRIN [Concomitant]
  7. CLONAZEPAM [Concomitant]
  8. FLU VAX [Concomitant]
  9. NEBULIZER TREATMENT [Concomitant]
  10. ZYRTEC [Concomitant]

REACTIONS (5)
  - Cough [Not Recovered/Not Resolved]
  - Product taste abnormal [Not Recovered/Not Resolved]
  - Condition aggravated [Not Recovered/Not Resolved]
  - Drug ineffective [Not Recovered/Not Resolved]
  - Product quality issue [Unknown]
